FAERS Safety Report 4981833-X (Version None)
Quarter: 2006Q2

REPORT INFORMATION
  Report Type: 
  Country: None (occurrence: None)
  Receive Date: 20060420
  Receipt Date: 20060420
  Transmission Date: 20061013
  Serious: Yes (Hospitalization)
  Sender: FDA-Public Use
  Company Number: None

PATIENT
  Age: 67 Year
  Sex: Female
  Weight: 64.8644 kg

DRUGS (3)
  1. GEMCITABINE [Suspect]
     Indication: METASTATIC NEOPLASM
     Dosage: 1837MG   D1 + 8 Q21 DAYS   IV DRIP
     Route: 041
     Dates: start: 20051115, end: 20060329
  2. CARBOPLATIN [Suspect]
     Indication: METASTATIC NEOPLASM
     Dosage: 564MG    D1 + 8  Q21 DAYS  IV DRIP
     Route: 041
     Dates: start: 20051115, end: 20060329
  3. XELODA [Suspect]
     Indication: METASTATIC NEOPLASM
     Dosage: 3000 MG QD   DAI 1 -14DAY   PO
     Route: 048
     Dates: start: 20051115, end: 20060329

REACTIONS (2)
  - ANAEMIA [None]
  - CHEST DISCOMFORT [None]
